FAERS Safety Report 5391050-X (Version None)
Quarter: 2007Q3

REPORT INFORMATION
  Report Type: 
  Country: None (occurrence: None)
  Receive Date: 20070717
  Receipt Date: 20070711
  Transmission Date: 20080115
  Serious: Yes (Death)
  Sender: FDA-Public Use
  Company Number: 163-20785-07070629

PATIENT
  Age: 77 Year
  Sex: Male

DRUGS (8)
  1. THALOMID [Suspect]
     Indication: MULTIPLE MYELOMA
     Dosage: SEE IMAGE
     Route: 048
     Dates: start: 20061019, end: 20061101
  2. THALOMID [Suspect]
     Indication: MULTIPLE MYELOMA
     Dosage: SEE IMAGE
     Route: 048
     Dates: start: 20061110, end: 20070101
  3. THALOMID [Suspect]
     Indication: MULTIPLE MYELOMA
     Dosage: SEE IMAGE
     Route: 048
     Dates: start: 20070108, end: 20070301
  4. CELEBREX [Concomitant]
  5. HYDROCODONE W/ APAP (PROCET) [Concomitant]
  6. DEXAMETHASONE TAB [Concomitant]
  7. WARFARIN SODIUM [Concomitant]
  8. NEXIUM [Concomitant]

REACTIONS (1)
  - CYSTITIS [None]
